FAERS Safety Report 26206485 (Version 1)
Quarter: 2025Q4

REPORT INFORMATION
  Report Type: Spontaneous
  Country: US (occurrence: US)
  Receive Date: 20251229
  Receipt Date: 20251229
  Transmission Date: 20260117
  Serious: No
  Sender: LEO PHARM
  Company Number: US-LEO Pharma-385152

PATIENT
  Age: 64 Year
  Sex: Male

DRUGS (1)
  1. ANZUPGO [Suspect]
     Active Substance: DELGOCITINIB
     Indication: Dermatitis atopic
     Dosage: TREATMENT IS ONGOING
     Route: 003
     Dates: start: 202512

REACTIONS (2)
  - Rash [Unknown]
  - Product use in unapproved indication [Unknown]
